FAERS Safety Report 8473461-9 (Version None)
Quarter: 2012Q2

REPORT INFORMATION
  Report Type: 
  Country: None (occurrence: None)
  Receive Date: 20120622
  Receipt Date: 20120622
  Transmission Date: 20120825
  Serious: Yes (Hospitalization)
  Sender: FDA-Public Use
  Company Number: None

PATIENT
  Sex: Male
  Weight: 13.6 kg

DRUGS (5)
  1. CYTARABINE [Suspect]
     Dosage: 50 MG
  2. BACTRIM [Concomitant]
  3. VINCRISTINE SULFATE [Suspect]
     Dosage: 3.6 MG
  4. PROPOFOL [Concomitant]
  5. DEXAMETHASONE SODIUM PHOSPHATE [Suspect]
     Dosage: 98 MG

REACTIONS (4)
  - ASPARTATE AMINOTRANSFERASE INCREASED [None]
  - BLOOD BILIRUBIN INCREASED [None]
  - PANCYTOPENIA [None]
  - ALANINE AMINOTRANSFERASE INCREASED [None]
